FAERS Safety Report 20813699 (Version 1)
Quarter: 2022Q2

REPORT INFORMATION
  Report Type: Spontaneous
  Country: US (occurrence: US)
  Receive Date: 20220511
  Receipt Date: 20220511
  Transmission Date: 20220721
  Serious: No
  Sender: FDA-Public Use
  Company Number: US-MICRO LABS LIMITED-ML2022-01701

PATIENT
  Age: 76 Year
  Sex: Male
  Weight: 94 kg

DRUGS (1)
  1. DORZOLAMIDE\TIMOLOL [Suspect]
     Active Substance: DORZOLAMIDE\TIMOLOL
     Indication: Glaucoma
     Dosage: 1 DROP IN EACH EYE?2 TIMES DAILY (MORNING AND NIGHT WITH 12-HOUR GAP BETWEEN) ?STRENGTH: 22.3 MG/ 6.
     Dates: end: 20220408

REACTIONS (7)
  - Eye infection [Not Recovered/Not Resolved]
  - Eye irritation [Not Recovered/Not Resolved]
  - Lacrimation increased [Not Recovered/Not Resolved]
  - Swelling of eyelid [Recovering/Resolving]
  - Eye discharge [Not Recovered/Not Resolved]
  - Eyelid margin crusting [Not Recovered/Not Resolved]
  - Eye pruritus [Not Recovered/Not Resolved]

NARRATIVE: CASE EVENT DATE: 20220201
